FAERS Safety Report 24964897 (Version 1)
Quarter: 2025Q1

REPORT INFORMATION
  Report Type: Spontaneous
  Country: IT (occurrence: IT)
  Receive Date: 20250213
  Receipt Date: 20250213
  Transmission Date: 20250408
  Serious: Yes (Other)
  Sender: MYLAN
  Company Number: IT-MYLANLABS-2025M1010705

PATIENT
  Age: 71 Year
  Sex: Female

DRUGS (8)
  1. PREDNISONE [Suspect]
     Active Substance: PREDNISONE
     Indication: ASIA syndrome
     Dosage: 75 MILLIGRAM, QD
     Route: 065
     Dates: start: 2022
  2. PREDNISONE [Suspect]
     Active Substance: PREDNISONE
     Route: 065
  3. METHOTREXATE [Suspect]
     Active Substance: METHOTREXATE
     Indication: ASIA syndrome
     Route: 065
     Dates: start: 2022, end: 202211
  4. AZATHIOPRINE [Suspect]
     Active Substance: AZATHIOPRINE
     Indication: ASIA syndrome
     Route: 065
     Dates: start: 2022, end: 202211
  5. COLCHICINE [Suspect]
     Active Substance: COLCHICINE
     Indication: ASIA syndrome
     Route: 065
     Dates: start: 2022, end: 202211
  6. ADALIMUMAB [Suspect]
     Active Substance: ADALIMUMAB
     Indication: ASIA syndrome
     Dosage: 40 MILLIGRAM, BIWEEKLY
     Route: 058
  7. ADALIMUMAB [Suspect]
     Active Substance: ADALIMUMAB
     Indication: Multicentric reticulohistiocytosis
  8. ZOLEDRONIC ACID [Concomitant]
     Active Substance: ZOLEDRONIC ACID
     Indication: Osteoporosis prophylaxis
     Route: 065
     Dates: start: 2022

REACTIONS (2)
  - Drug ineffective [Unknown]
  - Off label use [Unknown]
